FAERS Safety Report 9606239 (Version 1)
Quarter: 2013Q4

REPORT INFORMATION
  Report Type: Spontaneous
  Country: US (occurrence: US)
  Receive Date: 20131008
  Receipt Date: 20131008
  Transmission Date: 20140711
  Serious: No
  Sender: FDA-Public Use
  Company Number: US-AMGEN-USASP2013046856

PATIENT
  Age: 76 Year
  Sex: Female

DRUGS (6)
  1. PROLIA [Suspect]
     Indication: OSTEOPOROSIS POSTMENOPAUSAL
     Dosage: UNK
     Dates: start: 20130515
  2. CARDIZEM                           /00489701/ [Concomitant]
  3. ZOCOR [Concomitant]
  4. NEXIUM                             /01479302/ [Concomitant]
  5. BABY ASPIRIN [Concomitant]
  6. VIACTIV                            /00751501/ [Concomitant]

REACTIONS (2)
  - Skin ulcer [Unknown]
  - Pain in extremity [Unknown]
